FAERS Safety Report 6028004-6 (Version None)
Quarter: 2008Q4

REPORT INFORMATION
  Report Type: 
  Country: None (occurrence: None)
  Receive Date: 20081223
  Receipt Date: 20081217
  Transmission Date: 20090506
  Serious: Yes (Other)
  Sender: FDA-Public Use
  Company Number: CHNY2008DE04460

PATIENT
  Age: 21 Year
  Sex: Female

DRUGS (1)
  1. NICOTINE [Suspect]
     Dosage: 21 MG, QD, TRANSDERMAL
     Route: 062
     Dates: start: 20081123, end: 20081123

REACTIONS (4)
  - ANGINA PECTORIS [None]
  - MONOPLEGIA [None]
  - PAIN [None]
  - SLEEP DISORDER [None]
